FAERS Safety Report 21875578 (Version 1)
Quarter: 2023Q1

REPORT INFORMATION
  Report Type: Report from Study
  Country: GB (occurrence: GB)
  Receive Date: 20230118
  Receipt Date: 20230118
  Transmission Date: 20230418
  Serious: Yes (Other)
  Sender: FDA-Public Use
  Company Number: GB-CELLTRION INC.-2023GB000428

PATIENT

DRUGS (16)
  1. TRASTUZUMAB [Suspect]
     Active Substance: TRASTUZUMAB
     Indication: Breast cancer
     Dosage: 525 MG, EVERY 3 WEEK (LOADING DOSE)
     Route: 042
     Dates: start: 20150528, end: 20150528
  2. TRASTUZUMAB [Suspect]
     Active Substance: TRASTUZUMAB
     Dosage: 400 MG, EVERY 3 WEEK
     Route: 042
     Dates: start: 20150619, end: 20180427
  3. TRASTUZUMAB [Suspect]
     Active Substance: TRASTUZUMAB
     Dosage: 441 MG, EVERY 3 WEEK
     Route: 042
     Dates: start: 20180518, end: 20180904
  4. PERTUZUMAB [Suspect]
     Active Substance: PERTUZUMAB
     Indication: Breast cancer
     Dosage: 840 MG, EVERY 3 WEEK (LOADING DOSE)
     Route: 042
     Dates: start: 20150528, end: 20150528
  5. PERTUZUMAB [Suspect]
     Active Substance: PERTUZUMAB
     Dosage: 420 MG, EVERY 3 WEEK (4 CYCLES)
     Route: 042
     Dates: start: 20150619, end: 20150904
  6. PACLITAXEL [Suspect]
     Active Substance: PACLITAXEL
     Indication: Breast cancer
     Dosage: 138 MG, EVERY 1 WEEK
     Route: 042
     Dates: start: 20150529, end: 20151030
  7. CHLORHEXIDINE GLUCONATE [Concomitant]
     Active Substance: CHLORHEXIDINE GLUCONATE
     Dosage: 5 ML (FREQUENCY: 0.25 PER DAY)
     Dates: start: 20150529, end: 2015
  8. ASPIRIN [Concomitant]
     Active Substance: ASPIRIN
     Dosage: 300 MG (FREQUENCY: 0.25MG PER DAY)
     Dates: start: 20150605
  9. LOPERAMIDE [Concomitant]
     Active Substance: LOPERAMIDE
     Dosage: 2 MG
     Dates: start: 20150619, end: 20150624
  10. AMOXICILLIN\CLAVULANATE POTASSIUM [Concomitant]
     Active Substance: AMOXICILLIN\CLAVULANATE POTASSIUM
     Dosage: 375 MG (FREQUENCY: 0.33 PER DAY)
     Dates: start: 20151106, end: 20151111
  11. CHLORPHENIRAMINE MALEATE [Concomitant]
     Active Substance: CHLORPHENIRAMINE MALEATE
     Dosage: 4 MG, AS NEEDED
     Dates: start: 20160420, end: 2016
  12. CLOTRIMAZOLE [Concomitant]
     Active Substance: CLOTRIMAZOLE
     Dosage: 500 MG (ONE TABLET PER NIGHT)
     Dates: start: 20150605, end: 2015
  13. CLOTRIMAZOLE [Concomitant]
     Active Substance: CLOTRIMAZOLE
     Dosage: 200 MG, EVERY 1 DAY
     Dates: start: 20160420
  14. ASTRAZENECA COVID-19 VACCINE [Concomitant]
     Active Substance: AZD-1222
     Indication: COVID-19 prophylaxis
  15. RASPBERRY [Concomitant]
     Active Substance: RASPBERRY
     Dosage: UNK
     Dates: start: 20150722
  16. METOCLOPRAMIDE [Concomitant]
     Active Substance: METOCLOPRAMIDE
     Dosage: 10 MG (FREQUENCY: 0.33 PER DAY)
     Dates: start: 20150529, end: 2015

REACTIONS (8)
  - Neuropathy peripheral [Recovered/Resolved]
  - Mouth ulceration [Recovered/Resolved]
  - Nail disorder [Recovered/Resolved]
  - Dry skin [Recovered/Resolved]
  - Onychomycosis [Recovered/Resolved]
  - Cough [Recovered/Resolved]
  - Fatigue [Recovered/Resolved]
  - Diarrhoea [Recovered/Resolved]

NARRATIVE: CASE EVENT DATE: 20150611
